FAERS Safety Report 18923732 (Version 2)
Quarter: 2021Q1

REPORT INFORMATION
  Report Type: Spontaneous
  Country: US (occurrence: US)
  Receive Date: 20210222
  Receipt Date: 20210321
  Transmission Date: 20210420
  Serious: Yes (Hospitalization)
  Sender: FDA-Public Use
  Company Number: US-BIOGEN-2021BI00966266

PATIENT
  Age: 25 Year
  Sex: Female

DRUGS (2)
  1. TYSABRI [Suspect]
     Active Substance: NATALIZUMAB
     Route: 065
  2. TYSABRI [Suspect]
     Active Substance: NATALIZUMAB
     Indication: MULTIPLE SCLEROSIS
     Route: 065
     Dates: start: 20200624

REACTIONS (3)
  - Infusion site swelling [Unknown]
  - Device placement issue [Unknown]
  - Infusion site extravasation [Recovered/Resolved]

NARRATIVE: CASE EVENT DATE: 20210106
